FAERS Safety Report 18038749 (Version 1)
Quarter: 2020Q3

REPORT INFORMATION
  Report Type: Report from Study
  Country: MX (occurrence: MX)
  Receive Date: 20200717
  Receipt Date: 20200717
  Transmission Date: 20201103
  Serious: Yes (Death, Hospitalization)
  Sender: FDA-Public Use
  Company Number: NVSC2020MX201181

PATIENT
  Age: 62 Year
  Sex: Male
  Weight: 87 kg

DRUGS (3)
  1. KEPPRA [Concomitant]
     Active Substance: LEVETIRACETAM
     Indication: PRODUCT USED FOR UNKNOWN INDICATION
     Dosage: 2 MG
     Route: 048
     Dates: start: 201811, end: 202007
  2. MEKINIST [Suspect]
     Active Substance: TRAMETINIB DIMETHYL SULFOXIDE
     Indication: PRODUCT USED FOR UNKNOWN INDICATION
     Dosage: 20 MG, QD (5 MG)
     Route: 048
     Dates: start: 201909, end: 202007
  3. METICORTEN [Concomitant]
     Active Substance: PREDNISONE
     Indication: PRODUCT USED FOR UNKNOWN INDICATION
     Dosage: 10 MG
     Route: 048
     Dates: start: 202011, end: 202007

REACTIONS (4)
  - Asthenia [Unknown]
  - Pharyngitis [Unknown]
  - Coronavirus infection [Fatal]
  - Pyrexia [Unknown]

NARRATIVE: CASE EVENT DATE: 20200711
